FAERS Safety Report 6972717-6 (Version None)
Quarter: 2010Q3

REPORT INFORMATION
  Report Type: 
  Country: None (occurrence: None)
  Receive Date: 20100909
  Receipt Date: 20091009
  Transmission Date: 20110219
  Serious: No
  Sender: FDA-Public Use
  Company Number: US-KINGPHARMUSA00001-K200901253

PATIENT
  Sex: Female
  Weight: 63.492 kg

DRUGS (3)
  1. CYTOMEL [Suspect]
     Indication: THYROID DISORDER
     Dosage: 50 MCG, BID
     Route: 048
     Dates: start: 20080601, end: 20090701
  2. CYTOMEL [Suspect]
     Dosage: 50 MCG, BID
     Route: 048
     Dates: start: 20091001
  3. CYTOMEL [Suspect]
     Dosage: 25 MCG, SINGLE
     Route: 048
     Dates: start: 20091101, end: 20091101

REACTIONS (3)
  - DYSPNOEA [None]
  - MUSCLE SPASMS [None]
  - UNEVALUABLE EVENT [None]
